FAERS Safety Report 4657616-7 (Version None)
Quarter: 2005Q2

REPORT INFORMATION
  Report Type: 
  Country: None (occurrence: None)
  Receive Date: 20050405
  Receipt Date: 20050113
  Transmission Date: 20051028
  Serious: Yes (Hospitalization)
  Sender: FDA-Public Use
  Company Number: PHEH2004US12728

PATIENT
  Age: 62 Year
  Sex: Female

DRUGS (5)
  1. NEORAL [Suspect]
     Indication: HEART TRANSPLANT REJECTION
     Dosage: 100 MG, BID, ORAL
     Route: 048
  2. CELLCEPT [Concomitant]
  3. K-DUR 10 [Concomitant]
  4. BUMEX [Concomitant]
  5. ZOVIRAX [Concomitant]

REACTIONS (2)
  - DYSPNOEA [None]
  - PNEUMONIA [None]
